FAERS Safety Report 10042709 (Version 2)
Quarter: 2014Q2

REPORT INFORMATION
  Report Type: Spontaneous
  Country: US (occurrence: US)
  Receive Date: 20140327
  Receipt Date: 20140401
  Transmission Date: 20141212
  Serious: No
  Sender: FDA-Public Use
  Company Number: US-PFIZER INC-2014085145

PATIENT
  Age: 71 Year
  Sex: Male
  Weight: 90.7 kg

DRUGS (6)
  1. LYRICA [Suspect]
     Indication: DIABETIC NEUROPATHY
     Dosage: 75 MG, 2X/DAY
     Route: 048
  2. COSTART [Concomitant]
     Indication: BLOOD CHOLESTEROL INCREASED
     Dosage: 10 MG, UNK
  3. ASPIRIN [Concomitant]
     Dosage: 81 MG, UNK
  4. METOPROLOL [Concomitant]
     Dosage: 50 MG, 1X/DAY
  5. LISINOPRIL [Concomitant]
     Dosage: 20 MG, 1X/DAY
  6. MELOXICAM [Concomitant]
     Indication: ROTATOR CUFF SYNDROME
     Dosage: 15 MG, 1X/DAY

REACTIONS (5)
  - Feeling abnormal [Unknown]
  - Insomnia [Unknown]
  - Burning sensation [Unknown]
  - Pain [Unknown]
  - Paraesthesia [Unknown]
